FAERS Safety Report 5271856-8 (Version None)
Quarter: 2007Q1

REPORT INFORMATION
  Report Type: 
  Country: None (occurrence: None)
  Receive Date: 20070316
  Receipt Date: 20070309
  Transmission Date: 20070707
  Serious: Yes (Other)
  Sender: FDA-Public Use
  Company Number: 2007-01155

PATIENT
  Sex: Female

DRUGS (1)
  1. TRELSTAR [Suspect]
     Indication: ENDOMETRIOSIS
     Dosage: 11.25 MG Q 3 MONTHS FOR 3 MONTHS, INTRAMUSCULAR
     Route: 030
     Dates: start: 20040101, end: 20040101

REACTIONS (1)
  - RETINAL HAEMORRHAGE [None]
